FAERS Safety Report 25540488 (Version 1)
Quarter: 2025Q3

REPORT INFORMATION
  Report Type: Spontaneous
  Country: EU (occurrence: EU)
  Receive Date: 20250710
  Receipt Date: 20250710
  Transmission Date: 20251021
  Serious: Yes (Other)
  Sender: BRISTOL-MYERS SQUIBB COMPANY
  Company Number: None

PATIENT
  Age: 85 Year
  Sex: Male

DRUGS (1)
  1. ELIQUIS [Suspect]
     Active Substance: APIXABAN
     Indication: Peripheral vein thrombosis
     Dosage: 1 EVERY 12 HOURS, 28 TABLETS
     Route: 048
     Dates: start: 20231108, end: 20250610

REACTIONS (2)
  - Subarachnoid haemorrhage [Recovering/Resolving]
  - Craniocerebral injury [Unknown]

NARRATIVE: CASE EVENT DATE: 20250610
